FAERS Safety Report 17850284 (Version 5)
Quarter: 2020Q4

REPORT INFORMATION
  Report Type: Report from Study
  Country: US (occurrence: US)
  Receive Date: 20200602
  Receipt Date: 20201105
  Transmission Date: 20210113
  Serious: Yes (Hospitalization, Other)
  Sender: FDA-Public Use
  Company Number: NVSC2020US151949

PATIENT
  Age: 39 Year
  Sex: Female

DRUGS (1)
  1. GILENYA [Suspect]
     Active Substance: FINGOLIMOD HYDROCHLORIDE
     Indication: RELAPSING-REMITTING MULTIPLE SCLEROSIS
     Dosage: 0.5 MG, QD
     Route: 048
     Dates: start: 20190814

REACTIONS (8)
  - Multiple sclerosis relapse [Recovering/Resolving]
  - Injection site thrombosis [Unknown]
  - Rash [Unknown]
  - Gait inability [Recovering/Resolving]
  - Increased tendency to bruise [Unknown]
  - Blood cholesterol increased [Unknown]
  - Skin lesion [Unknown]
  - Aphasia [Unknown]

NARRATIVE: CASE EVENT DATE: 20200401
